FAERS Safety Report 6475861-5 (Version None)
Quarter: 2009Q4

REPORT INFORMATION
  Report Type: 
  Country: None (occurrence: None)
  Receive Date: 20091204
  Receipt Date: 20091124
  Transmission Date: 20100525
  Serious: Yes (Hospitalization, Other)
  Sender: FDA-Public Use
  Company Number: DE-ABBOTT-09P-062-0610473-00

PATIENT
  Sex: Female

DRUGS (3)
  1. HUMIRA [Suspect]
     Indication: RHEUMATOID ARTHRITIS
     Route: 058
     Dates: start: 20081101
  2. CORTISONE [Concomitant]
     Indication: RHEUMATOID ARTHRITIS
  3. ANALGETICS (NOT SPECIFIED) [Concomitant]
     Indication: PAIN

REACTIONS (2)
  - PAIN [None]
  - POLYNEUROPATHY [None]
